FAERS Safety Report 6927702-7 (Version None)
Quarter: 2010Q3

REPORT INFORMATION
  Report Type: 
  Country: None (occurrence: None)
  Receive Date: 20100812
  Receipt Date: 20100728
  Transmission Date: 20110219
  Serious: Yes (Hospitalization)
  Sender: FDA-Public Use
  Company Number: AUR-APL -2010-01949

PATIENT
  Age: 77 Year
  Sex: Male
  Weight: 72.8 kg

DRUGS (10)
  1. CLINDAMYCIN HCL [Suspect]
  2. HYDROCHLOROTHIAZIDE [Suspect]
  3. LISINOPRIL [Suspect]
  4. METFORMIN [Suspect]
  5. SUNITINIB MALATE [Suspect]
     Dosage: 37.5MG - DAILY - ORAL (21 DAY CYCLE)
     Dates: start: 20100310, end: 20100509
  6. ALBUTEROL SULFATE AND IPRATROPIUM BROMIDE [Suspect]
     Dosage: 200D ORAL
  7. ASPIRIN [Suspect]
     Dosage: 81MG
  8. HYDROCODONE BITARTRATE + ACETAMINOPHEN [Suspect]
  9. TERAZOSIN HCL [Suspect]
  10. CLOPIDOGREL [Suspect]

REACTIONS (6)
  - ANAEMIA [None]
  - AORTIC STENOSIS [None]
  - CARDIAC FAILURE [None]
  - PNEUMONIA [None]
  - RECTAL HAEMORRHAGE [None]
  - THROMBOCYTOPENIA [None]
